FAERS Safety Report 25064178 (Version 2)
Quarter: 2025Q2

REPORT INFORMATION
  Report Type: Spontaneous
  Country: US (occurrence: US)
  Receive Date: 20250311
  Receipt Date: 20250403
  Transmission Date: 20250716
  Serious: No
  Sender: Haleon PLC
  Company Number: US-HALEON-2232252

PATIENT
  Age: 59 Year
  Sex: Female

DRUGS (2)
  1. FLONASE ALLERGY RELIEF [Suspect]
     Active Substance: FLUTICASONE PROPIONATE
     Indication: Hypersensitivity
     Dates: end: 20250302
  2. FLONASE ALLERGY RELIEF [Suspect]
     Active Substance: FLUTICASONE PROPIONATE
     Indication: Sinusitis

REACTIONS (8)
  - Allergic reaction to excipient [Recovering/Resolving]
  - Sinus disorder [Unknown]
  - Swelling face [Unknown]
  - Head discomfort [Unknown]
  - Ear discomfort [Unknown]
  - Throat irritation [Recovering/Resolving]
  - Nasal discomfort [Recovering/Resolving]
  - Eye swelling [Recovering/Resolving]
